FAERS Safety Report 4758534-6 (Version None)
Quarter: 2005Q3

REPORT INFORMATION
  Report Type: 
  Country: None (occurrence: None)
  Receive Date: 20050826
  Receipt Date: 20050819
  Transmission Date: 20060218
  Serious: Yes (Death, Hospitalization)
  Sender: FDA-Public Use
  Company Number: GBWYE919619AUG05

PATIENT
  Age: 48 Year
  Sex: Female

DRUGS (2)
  1. EFFEXOR [Suspect]
     Indication: DEPRESSION
     Dosage: ORAL
     Route: 048
  2. BENZODIAZEPINE (BENZODIAZEPINE, , 0) [Suspect]
     Dosage: ORAL
     Route: 048

REACTIONS (25)
  - ARRHYTHMIA [None]
  - BASOPHIL COUNT ABNORMAL [None]
  - BLOOD ALBUMIN INCREASED [None]
  - BLOOD BILIRUBIN ABNORMAL [None]
  - BLOOD CHLORIDE DECREASED [None]
  - BLOOD LACTATE DEHYDROGENASE INCREASED [None]
  - BLOOD PRESSURE INADEQUATELY CONTROLLED [None]
  - BRADYCARDIA [None]
  - CARDIAC ARREST [None]
  - CHEST PAIN [None]
  - DEPRESSED LEVEL OF CONSCIOUSNESS [None]
  - DRUG INEFFECTIVE [None]
  - ELECTROCARDIOGRAM QRS COMPLEX PROLONGED [None]
  - ELECTROCARDIOGRAM QRS COMPLEX SHORTENED [None]
  - EOSINOPHIL COUNT ABNORMAL [None]
  - INTENTIONAL MISUSE [None]
  - LYMPHOCYTE COUNT ABNORMAL [None]
  - MONOCYTE COUNT ABNORMAL [None]
  - MULTIPLE DRUG OVERDOSE [None]
  - OVERDOSE [None]
  - REFUSAL OF TREATMENT BY PATIENT [None]
  - SHOCK [None]
  - URINE POTASSIUM ABNORMAL [None]
  - URINE SODIUM ABNORMAL [None]
  - WHITE BLOOD CELL COUNT INCREASED [None]
